FAERS Safety Report 11543919 (Version 7)
Quarter: 2019Q2

REPORT INFORMATION
  Report Type: Spontaneous
  Country: CA (occurrence: CA)
  Receive Date: 20150924
  Receipt Date: 20190614
  Transmission Date: 20190711
  Serious: Yes (Other)
  Sender: FDA-Public Use
  Company Number: CA-ROCHE-GNE302571

PATIENT
  Age: 42 Year
  Sex: Female
  Weight: 65 kg

DRUGS (3)
  1. XOLAIR [Suspect]
     Active Substance: OMALIZUMAB
     Dosage: 375 MG, BIW
     Route: 058
     Dates: start: 20180821
  2. XOLAIR [Suspect]
     Active Substance: OMALIZUMAB
     Indication: ASTHMA
     Dosage: 375 MG, BIW
     Route: 058
     Dates: start: 20070413
  3. XOLAIR [Suspect]
     Active Substance: OMALIZUMAB
     Route: 058
     Dates: start: 20190605

REACTIONS (17)
  - Haemoptysis [Not Recovered/Not Resolved]
  - Pneumonia [Recovering/Resolving]
  - Decreased appetite [Not Recovered/Not Resolved]
  - Systemic lupus erythematosus [Unknown]
  - Hypersensitivity [Recovering/Resolving]
  - Blood pressure decreased [Unknown]
  - Oropharyngeal pain [Recovering/Resolving]
  - Sputum discoloured [Not Recovered/Not Resolved]
  - Pericarditis [Unknown]
  - Pyrexia [Unknown]
  - Sinusitis [Unknown]
  - Oesophageal candidiasis [Unknown]
  - Anaemia [Unknown]
  - Fibromyalgia [Unknown]
  - Productive cough [Not Recovered/Not Resolved]
  - Bronchitis [Recovering/Resolving]
  - Heart rate increased [Unknown]

NARRATIVE: CASE EVENT DATE: 2017
